FAERS Safety Report 10137532 (Version 1)
Quarter: 2014Q2

REPORT INFORMATION
  Report Type: Spontaneous
  Country: FR (occurrence: FR)
  Receive Date: 20140429
  Receipt Date: 20140429
  Transmission Date: 20141212
  Serious: Yes (Hospitalization)
  Sender: FDA-Public Use
  Company Number: FR-SA-2014SA051221

PATIENT
  Age: 65 Year
  Sex: Female

DRUGS (12)
  1. LANTUS [Suspect]
     Indication: INSULIN-REQUIRING TYPE 2 DIABETES MELLITUS
     Route: 058
     Dates: end: 20131213
  2. XARELTO [Suspect]
     Indication: ATRIAL FIBRILLATION
     Route: 048
     Dates: start: 201304, end: 20131213
  3. MODOPAR [Suspect]
     Indication: PRODUCT USED FOR UNKNOWN INDICATION
     Route: 048
     Dates: end: 201401
  4. TAHOR [Concomitant]
     Indication: DYSLIPIDAEMIA
     Route: 048
  5. DETENSIEL [Concomitant]
     Route: 048
  6. COVERAM [Concomitant]
     Route: 048
  7. METFORMIN [Concomitant]
     Indication: INSULIN-REQUIRING TYPE 2 DIABETES MELLITUS
     Route: 048
  8. NOVORAPID [Concomitant]
     Indication: INSULIN-REQUIRING TYPE 2 DIABETES MELLITUS
     Route: 058
  9. VENLAFAXINE [Concomitant]
     Route: 048
  10. DIGOXINE [Concomitant]
     Route: 048
  11. TARDYFERON [Concomitant]
     Route: 048
  12. VITAMIN B12 [Concomitant]
     Route: 048

REACTIONS (3)
  - Confusional state [Recovered/Resolved]
  - Cerebral haemorrhage [Recovered/Resolved]
  - Cerebral haematoma [Recovered/Resolved]
